FAERS Safety Report 6395520-7 (Version None)
Quarter: 2009Q4

REPORT INFORMATION
  Report Type: 
  Country: None (occurrence: None)
  Receive Date: 20091007
  Receipt Date: 20090928
  Transmission Date: 20100525
  Serious: Yes (Hospitalization)
  Sender: FDA-Public Use
  Company Number: 2009AP003950

PATIENT
  Age: 49 Year
  Sex: Male

DRUGS (5)
  1. ZOLPIDEM TARTRATE [Suspect]
     Indication: SLEEP DISORDER
     Dosage: 10 MG;1X;PO
     Route: 048
     Dates: start: 20090924, end: 20090924
  2. FLUOXETINE HCL [Concomitant]
  3. VALPROATE SODIUM [Concomitant]
  4. PRAVASTATIN [Concomitant]
  5. ZOLPIDEM TARTRATE [Concomitant]

REACTIONS (7)
  - BURNING SENSATION [None]
  - CONVULSION [None]
  - DISORIENTATION [None]
  - GENERALISED ERYTHEMA [None]
  - HOT FLUSH [None]
  - PRODUCT SUBSTITUTION ISSUE [None]
  - RASH [None]
